FAERS Safety Report 7669632-1 (Version None)
Quarter: 2011Q3

REPORT INFORMATION
  Report Type: 
  Country: None (occurrence: None)
  Receive Date: 20110808
  Receipt Date: 20110726
  Transmission Date: 20111222
  Serious: Yes (Hospitalization, Other)
  Sender: FDA-Public Use
  Company Number: PHHY2011FR68526

PATIENT
  Sex: Female

DRUGS (7)
  1. CORDARONE [Concomitant]
     Dosage: UNK UKN, UNK
  2. UVEDOSE [Concomitant]
     Dosage: UNK UKN, UNK
  3. PANTOPRAZOLE [Concomitant]
     Dosage: UNK UKN, UNK
  4. VALSARTAN [Suspect]
     Dosage: 160 MG, QD
     Dates: end: 20110611
  5. OROCAL [Concomitant]
     Dosage: UNK UKN, UNK
  6. ACTONEL [Concomitant]
     Dosage: UNK UKN, UNK
  7. LORAZEPAM [Concomitant]
     Dosage: UNK UKN, UNK

REACTIONS (9)
  - VOMITING [None]
  - BLOOD CREATININE INCREASED [None]
  - FALL [None]
  - LIPASE INCREASED [None]
  - FACIAL BONES FRACTURE [None]
  - GENERAL PHYSICAL HEALTH DETERIORATION [None]
  - RENAL FAILURE [None]
  - HYPOTENSION [None]
  - HEAD INJURY [None]
